FAERS Safety Report 12065894 (Version 6)
Quarter: 2018Q2

REPORT INFORMATION
  Report Type: Spontaneous
  Country: US (occurrence: US)
  Receive Date: 20160211
  Receipt Date: 20180425
  Transmission Date: 20180711
  Serious: Yes (Other)
  Sender: FDA-Public Use
  Company Number: US-PFIZER INC-2016078834

PATIENT
  Sex: Female

DRUGS (2)
  1. LYRICA [Suspect]
     Active Substance: PREGABALIN
     Indication: DIABETIC NEUROPATHY
     Dosage: 150 MG, UNK
  2. LYRICA [Suspect]
     Active Substance: PREGABALIN
     Dosage: 75 MG, UNK

REACTIONS (9)
  - Withdrawal syndrome [Unknown]
  - Migraine [Unknown]
  - Dizziness [Unknown]
  - Pain [Unknown]
  - Intentional product use issue [Unknown]
  - Drug dependence [Unknown]
  - Headache [Unknown]
  - Stress [Unknown]
  - Insomnia [Unknown]
